FAERS Safety Report 6828142-1 (Version None)
Quarter: 2010Q3

REPORT INFORMATION
  Report Type: 
  Country: None (occurrence: None)
  Receive Date: 20100709
  Receipt Date: 20070130
  Transmission Date: 20110219
  Serious: No
  Sender: FDA-Public Use
  Company Number: US-PFIZER INC-2007009367

PATIENT
  Sex: Female
  Weight: 78.02 kg

DRUGS (9)
  1. CHANTIX [Suspect]
     Indication: SMOKING CESSATION THERAPY
     Route: 048
     Dates: start: 20070122
  2. BISOPROLOL [Concomitant]
  3. LISINOPRIL [Concomitant]
  4. FUROSEMIDE [Concomitant]
  5. VYTORIN [Concomitant]
  6. METFORMIN HCL [Concomitant]
  7. WARFARIN [Concomitant]
  8. GABAPENTIN [Concomitant]
  9. ZYBAN [Concomitant]
     Indication: SMOKING CESSATION THERAPY

REACTIONS (1)
  - HYPERHIDROSIS [None]
